FAERS Safety Report 5501063-2 (Version None)
Quarter: 2007Q4

REPORT INFORMATION
  Report Type: 
  Country: None (occurrence: None)
  Receive Date: 20071029
  Receipt Date: 20051201
  Transmission Date: 20080405
  Serious: Yes (Hospitalization)
  Sender: FDA-Public Use
  Company Number: US-PFIZER INC-2003175902US

PATIENT
  Sex: Male

DRUGS (3)
  1. CAMPTOSAR [Suspect]
     Indication: COLORECTAL CANCER METASTATIC
     Route: 042
     Dates: start: 20030903, end: 20030903
  2. PLACEBO [Suspect]
     Indication: COLORECTAL CANCER METASTATIC
     Route: 048
  3. CAPECITABINE [Suspect]
     Indication: COLORECTAL CANCER METASTATIC
     Route: 048

REACTIONS (2)
  - ABDOMINAL PAIN [None]
  - SMALL INTESTINAL PERFORATION [None]
